FAERS Safety Report 14658898 (Version 3)
Quarter: 2018Q1

REPORT INFORMATION
  Report Type: Spontaneous
  Country: US (occurrence: US)
  Receive Date: 20180320
  Receipt Date: 20180327
  Transmission Date: 20180509
  Serious: Yes (Death, Hospitalization, Other)
  Sender: FDA-Public Use
  Company Number: US-009507513-1803USA007667

PATIENT
  Sex: Male
  Weight: 88.44 kg

DRUGS (5)
  1. QUINAPRIL HYDROCHLORIDE. [Concomitant]
     Active Substance: QUINAPRIL HYDROCHLORIDE
     Indication: HYPERTENSION
     Dosage: UNK
     Route: 048
     Dates: start: 2005, end: 20131212
  2. JANUMET [Suspect]
     Active Substance: METFORMIN HYDROCHLORIDE\SITAGLIPTIN PHOSPHATE
     Indication: TYPE 1 DIABETES MELLITUS
     Dosage: 50-1000 MG, TWICE DAILY
     Route: 048
     Dates: start: 20130103, end: 20130403
  3. ATORVASTATIN [Concomitant]
     Active Substance: ATORVASTATIN
     Indication: BLOOD CHOLESTEROL INCREASED
     Dosage: UNK
     Route: 048
     Dates: start: 2005, end: 20131212
  4. ZETIA [Concomitant]
     Active Substance: EZETIMIBE
     Indication: BLOOD CHOLESTEROL INCREASED
     Dosage: UNK
     Route: 048
     Dates: start: 2005, end: 20131212
  5. BISOPROLOL [Concomitant]
     Active Substance: BISOPROLOL
     Indication: HYPERTENSION
     Dosage: UNK
     Route: 048
     Dates: start: 2005, end: 20131212

REACTIONS (19)
  - Constipation [Unknown]
  - Pyelonephritis [Unknown]
  - Death [Fatal]
  - Insomnia [Unknown]
  - Obesity [Unknown]
  - Dehydration [Recovered/Resolved]
  - Tachycardia [Recovered/Resolved]
  - Metastases to adrenals [Unknown]
  - Splenic vein thrombosis [Unknown]
  - Decreased appetite [Unknown]
  - Hyponatraemia [Unknown]
  - Gait inability [Unknown]
  - Hiatus hernia [Unknown]
  - Gastrooesophageal reflux disease [Unknown]
  - Pneumonia [Unknown]
  - Dyslipidaemia [Unknown]
  - Pancreatic carcinoma [Unknown]
  - Off label use [Unknown]
  - Cholelithiasis [Unknown]

NARRATIVE: CASE EVENT DATE: 2013
